FAERS Safety Report 9214118 (Version 1)
Quarter: 2013Q2

REPORT INFORMATION
  Report Type: Report from Study
  Country: JP (occurrence: JP)
  Receive Date: 20130405
  Receipt Date: 20130405
  Transmission Date: 20140414
  Serious: Yes (Hospitalization)
  Sender: FDA-Public Use
  Company Number: JP-SANOFI-AVENTIS-2013SA033671

PATIENT
  Age: 72 Year
  Sex: Female
  Weight: 49.7 kg

DRUGS (15)
  1. DOCETAXEL [Suspect]
     Indication: BREAST CANCER
     Route: 065
     Dates: start: 20130304
  2. CELECOXIB [Suspect]
     Indication: BREAST CANCER
     Route: 065
     Dates: start: 2007
  3. TRASTUZUMAB [Suspect]
     Indication: BREAST CANCER
     Dosage: LOADING DOSE
     Route: 042
     Dates: start: 20130304
  4. TRASTUZUMAB [Suspect]
     Indication: BREAST CANCER
     Dosage: MAINTAINENCE DOSE
     Route: 042
  5. CARBOPLATIN [Suspect]
     Indication: BREAST CANCER
     Dosage: FORM-VIAL,INFUSION
     Route: 065
     Dates: start: 20130304
  6. PLACEBO [Suspect]
     Indication: BREAST CANCER
     Route: 042
  7. ETHYL ICOSAPENTATE [Concomitant]
     Dates: start: 1993
  8. LIMAPROST [Concomitant]
     Dates: start: 2007
  9. GLICLAZIDE [Concomitant]
     Dates: start: 1993
  10. FAMOTIDINE [Concomitant]
     Dates: start: 1993
  11. AMLODIPINE BESILATE [Concomitant]
     Dates: start: 1993
  12. EZETIMIBE [Concomitant]
     Dates: start: 1993
  13. VALSARTAN [Concomitant]
     Dates: start: 1993
  14. TOCOPHEROL [Concomitant]
     Dates: start: 1993
  15. VOGLIBOSE [Concomitant]
     Dates: start: 1993

REACTIONS (1)
  - Duodenal ulcer perforation [Recovered/Resolved]
